FAERS Safety Report 7967610-6 (Version None)
Quarter: 2011Q4

REPORT INFORMATION
  Report Type: 
  Country: None (occurrence: None)
  Receive Date: 20111207
  Receipt Date: 20111124
  Transmission Date: 20120403
  Serious: Yes (Other)
  Sender: FDA-Public Use
  Company Number: 2011AP002415

PATIENT
  Sex: Male

DRUGS (2)
  1. LATANOPROST [Suspect]
     Dosage: DRUG USE FOR UNKNOWN INDICATION
  2. LATANOPROST [Concomitant]

REACTIONS (4)
  - INTRAOCULAR PRESSURE INCREASED [None]
  - DISEASE PROGRESSION [None]
  - GLAUCOMA [None]
  - PRODUCT SUBSTITUTION ISSUE [None]
